FAERS Safety Report 13109352 (Version 1)
Quarter: 2017Q1

REPORT INFORMATION
  Report Type: Spontaneous
  Country: GR (occurrence: GR)
  Receive Date: 20170112
  Receipt Date: 20170112
  Transmission Date: 20170428
  Serious: Yes (Other)
  Sender: FDA-Public Use
  Company Number: GR-BRISTOL-MYERS SQUIBB COMPANY-BMS-2017-000066

PATIENT
  Age: 61 Year
  Sex: Male
  Weight: 89 kg

DRUGS (6)
  1. DUOPLAVIN [Concomitant]
     Active Substance: ASPIRIN\CLOPIDOGREL
     Indication: CORONARY ARTERY DISEASE
     Dosage: 1 MG, QD
     Route: 048
     Dates: start: 2000
  2. LOPRESOR                           /00376902/ [Concomitant]
     Active Substance: METOPROLOL TARTRATE
     Indication: CORONARY ARTERY DISEASE
     Dosage: 1 DF, BID
     Route: 048
     Dates: start: 2000
  3. PRAVACHOL [Suspect]
     Active Substance: PRAVASTATIN SODIUM
     Indication: DYSLIPIDAEMIA
     Dosage: 1 DF, QD
     Route: 048
     Dates: start: 2015, end: 2015
  4. MANYPER [Concomitant]
     Indication: CORONARY ARTERY DISEASE
     Dosage: 1 MG, QD
     Route: 048
  5. ANTORCIN [Suspect]
     Active Substance: ATORVASTATIN CALCIUM
     Indication: DYSLIPIDAEMIA
     Dosage: 1 DF, QD
     Route: 048
     Dates: start: 2015, end: 2016
  6. TELMISARTAN. [Concomitant]
     Active Substance: TELMISARTAN
     Indication: CORONARY ARTERY DISEASE
     Route: 048

REACTIONS (1)
  - Angioplasty [Unknown]

NARRATIVE: CASE EVENT DATE: 2015
